FAERS Safety Report 17913471 (Version 1)
Quarter: 2020Q2

REPORT INFORMATION
  Report Type: Spontaneous
  Country: DE (occurrence: DE)
  Receive Date: 20200618
  Receipt Date: 20200618
  Transmission Date: 20200714
  Serious: Yes (Hospitalization, Other)
  Sender: FDA-Public Use
  Company Number: DE-PFIZER INC-2020236706

PATIENT
  Age: 80 Year
  Sex: Female

DRUGS (6)
  1. LEVODOPA BENSERAZIDE CT [Concomitant]
     Dosage: UNK (25/100 MG, 0.5-0.5-0.5-0)
  2. RAMIPRIL. [Suspect]
     Active Substance: RAMIPRIL
     Dosage: 2.5 MG, 1X/DAY (QD (2.5 MG, 1-0-0-0)
  3. LEVEMIR [Concomitant]
     Active Substance: INSULIN DETEMIR
     Dosage: 100 IU/ML, (ACCORDING SCHEME)
     Route: 058
  4. TORASEMIDE [Suspect]
     Active Substance: TORSEMIDE
     Dosage: 10 MG (0.5-0-0-0)
  5. SIMVASTATIN. [Concomitant]
     Active Substance: SIMVASTATIN
     Dosage: 20 MG, 1X/DAY
  6. CITALOPRAM [Concomitant]
     Active Substance: CITALOPRAM HYDROBROMIDE
     Dosage: 20 MG, 1X/DAY (1-0-0-0)

REACTIONS (6)
  - Condition aggravated [Unknown]
  - Pallor [Unknown]
  - Electrolyte imbalance [Unknown]
  - Anaemia [Unknown]
  - General physical health deterioration [Unknown]
  - Haematemesis [Unknown]
